FAERS Safety Report 5737954-7 (Version None)
Quarter: 2008Q2

REPORT INFORMATION
  Report Type: 
  Country: None (occurrence: None)
  Receive Date: 20080508
  Receipt Date: 20080324
  Transmission Date: 20081010
  Serious: Yes (Other)
  Sender: FDA-Public Use
  Company Number: ZYD-AE-08-046

PATIENT
  Age: 55 Month
  Sex: Female

DRUGS (2)
  1. RIBAVIRIN [Suspect]
     Indication: HEPATITIS C VIRUS
     Dosage: 800MG PO
     Route: 048
     Dates: start: 20080101, end: 20080227
  2. PEG-INTERFERON ALFA-2A (RO 25-8310) [Suspect]
     Dosage: 180 MCG SQ
     Route: 058
     Dates: start: 20080101, end: 20080227

REACTIONS (2)
  - PYREXIA [None]
  - RED BLOOD CELL COUNT DECREASED [None]
